FAERS Safety Report 19635810 (Version 1)
Quarter: 2021Q3

REPORT INFORMATION
  Report Type: Spontaneous
  Country: US (occurrence: US)
  Receive Date: 20210729
  Receipt Date: 20210729
  Transmission Date: 20211014
  Serious: Yes (Hospitalization)
  Sender: FDA-Public Use
  Company Number: US-DOLGENCORP-2114430

PATIENT
  Sex: Female

DRUGS (1)
  1. DAYTIME NIGHTTIME COLD AND FLU [Suspect]
     Active Substance: ACETAMINOPHEN\DEXTROMETHORPHAN HYDROBROMIDE\DOXYLAMINE SUCCINATE\PHENYLEPHRINE
     Indication: SINUS DISORDER
     Route: 048
     Dates: start: 20210501, end: 20210502

REACTIONS (3)
  - Paralysis [None]
  - Dizziness [None]
  - Blindness transient [None]
